FAERS Safety Report 20026094 (Version 1)
Quarter: 2021Q4

REPORT INFORMATION
  Report Type: Spontaneous
  Country: GB (occurrence: GB)
  Receive Date: 20211102
  Receipt Date: 20211102
  Transmission Date: 20220303
  Serious: Yes (Other)
  Sender: FDA-Public Use
  Company Number: GB-002147023-NVSC2021GB245408

PATIENT

DRUGS (3)
  1. RUXOLITINIB [Suspect]
     Active Substance: RUXOLITINIB
     Indication: Myelofibrosis
     Dosage: 15 MG, BID
     Route: 065
  2. RUXOLITINIB [Suspect]
     Active Substance: RUXOLITINIB
     Dosage: 20 MG
     Route: 065
  3. RUXOLITINIB [Suspect]
     Active Substance: RUXOLITINIB
     Dosage: 10 MG
     Route: 065

REACTIONS (10)
  - Abdominal distension [Unknown]
  - Abdominal pain [Unknown]
  - Anaemia [Unknown]
  - Basal cell carcinoma [Unknown]
  - Lethargy [Unknown]
  - Fatigue [Unknown]
  - Hyperhidrosis [Recovered/Resolved]
  - Decreased appetite [Unknown]
  - Rash macular [Unknown]
  - Weight decreased [Unknown]
